FAERS Safety Report 15769473 (Version 1)
Quarter: 2018Q4

REPORT INFORMATION
  Report Type: Spontaneous
  Country: US (occurrence: US)
  Receive Date: 20181228
  Receipt Date: 20181228
  Transmission Date: 20190205
  Serious: No
  Sender: FDA-Public Use
  Company Number: US-AUROBINDO-AUR-APU-2018-009845

PATIENT
  Sex: Female

DRUGS (1)
  1. AMOXICILLIN TABLETS USP 500 MG [Suspect]
     Active Substance: AMOXICILLIN
     Indication: SINUSITIS
     Dosage: 2 DOSAGE FORM, DAILY
     Dates: start: 20180213

REACTIONS (2)
  - Abdominal discomfort [Not Recovered/Not Resolved]
  - Diarrhoea [Not Recovered/Not Resolved]
